FAERS Safety Report 4807235-4 (Version None)
Quarter: 2005Q4

REPORT INFORMATION
  Report Type: 
  Country: None (occurrence: None)
  Receive Date: 20051020
  Receipt Date: 20051020
  Transmission Date: 20060501
  Serious: No
  Sender: FDA-Public Use
  Company Number: None

PATIENT
  Age: 45 Year
  Sex: Male
  Weight: 86.1834 kg

DRUGS (2)
  1. PENICILLIN VK [Suspect]
     Indication: TOOTH INFECTION
     Dosage: 500MG  4 TIMES/DAY PO
     Route: 048
     Dates: start: 20051017, end: 20051025
  2. HYDROCO/APAP  5-500M   WATSON [Suspect]
     Indication: DENTAL DISCOMFORT
     Dosage: EVERY 4-6 HRS PRN  PO
     Route: 048
     Dates: start: 20051017, end: 20051020

REACTIONS (2)
  - INCORRECT DOSE ADMINISTERED [None]
  - MEDICATION ERROR [None]
